FAERS Safety Report 26112506 (Version 1)
Quarter: 2025Q4

REPORT INFORMATION
  Report Type: Spontaneous
  Country: EU (occurrence: EU)
  Receive Date: 20251202
  Receipt Date: 20251202
  Transmission Date: 20260118
  Serious: Yes (Other)
  Sender: MYLAN
  Company Number: None

PATIENT
  Age: 77 Year
  Sex: Female

DRUGS (12)
  1. ATORVASTATIN [Suspect]
     Active Substance: ATORVASTATIN
     Indication: Hypercholesterolaemia
     Dosage: 20 MILLIGRAM, QD (24 HOURS, 20 MG, 1 CP (AS REPORTED) PER DAY)
     Dates: start: 2025, end: 2025
  2. ATORVASTATIN [Suspect]
     Active Substance: ATORVASTATIN
     Dosage: 20 MILLIGRAM, QD (24 HOURS, 20 MG, 1 CP (AS REPORTED) PER DAY)
     Route: 048
     Dates: start: 2025, end: 2025
  3. ATORVASTATIN [Suspect]
     Active Substance: ATORVASTATIN
     Dosage: 20 MILLIGRAM, QD (24 HOURS, 20 MG, 1 CP (AS REPORTED) PER DAY)
     Route: 048
     Dates: start: 2025, end: 2025
  4. ATORVASTATIN [Suspect]
     Active Substance: ATORVASTATIN
     Dosage: 20 MILLIGRAM, QD (24 HOURS, 20 MG, 1 CP (AS REPORTED) PER DAY)
     Dates: start: 2025, end: 2025
  5. AMLODIPINE BESYLATE\PERINDOPRIL ARGININE [Concomitant]
     Active Substance: AMLODIPINE BESYLATE\PERINDOPRIL ARGININE
     Indication: Hypertension
     Dosage: 5 MILLIGRAM, QD (24 HOURS, REAPTAN 5 MG)
  6. AMLODIPINE BESYLATE\PERINDOPRIL ARGININE [Concomitant]
     Active Substance: AMLODIPINE BESYLATE\PERINDOPRIL ARGININE
     Dosage: 5 MILLIGRAM, QD (24 HOURS, REAPTAN 5 MG)
     Route: 048
  7. AMLODIPINE BESYLATE\PERINDOPRIL ARGININE [Concomitant]
     Active Substance: AMLODIPINE BESYLATE\PERINDOPRIL ARGININE
     Dosage: 5 MILLIGRAM, QD (24 HOURS, REAPTAN 5 MG)
     Route: 048
  8. AMLODIPINE BESYLATE\PERINDOPRIL ARGININE [Concomitant]
     Active Substance: AMLODIPINE BESYLATE\PERINDOPRIL ARGININE
     Dosage: 5 MILLIGRAM, QD (24 HOURS, REAPTAN 5 MG)
  9. OMEGA-3 FATTY ACIDS [Concomitant]
     Active Substance: OMEGA-3 FATTY ACIDS
     Indication: Hypertriglyceridaemia
     Dosage: 100 MILLIGRAM, BID (12 HOURS,1000 MG, 1 CAPSULE TWICE DAILY)
  10. OMEGA-3 FATTY ACIDS [Concomitant]
     Active Substance: OMEGA-3 FATTY ACIDS
     Dosage: 100 MILLIGRAM, BID (12 HOURS,1000 MG, 1 CAPSULE TWICE DAILY)
     Route: 048
  11. OMEGA-3 FATTY ACIDS [Concomitant]
     Active Substance: OMEGA-3 FATTY ACIDS
     Dosage: 100 MILLIGRAM, BID (12 HOURS,1000 MG, 1 CAPSULE TWICE DAILY)
     Route: 048
  12. OMEGA-3 FATTY ACIDS [Concomitant]
     Active Substance: OMEGA-3 FATTY ACIDS
     Dosage: 100 MILLIGRAM, BID (12 HOURS,1000 MG, 1 CAPSULE TWICE DAILY)

REACTIONS (2)
  - Asthenia [Recovering/Resolving]
  - Myalgia [Recovering/Resolving]

NARRATIVE: CASE EVENT DATE: 20250101
